FAERS Safety Report 7682923-3 (Version None)
Quarter: 2011Q3

REPORT INFORMATION
  Report Type: 
  Country: None (occurrence: None)
  Receive Date: 20110815
  Receipt Date: 20110810
  Transmission Date: 20111222
  Serious: Yes (Other)
  Sender: FDA-Public Use
  Company Number: JP-PFIZER INC-2011185311

PATIENT
  Age: 52 Year
  Sex: Female

DRUGS (1)
  1. AZULFIDINE [Suspect]

REACTIONS (2)
  - MATRIX METALLOPROTEINASE-3 INCREASED [None]
  - LIVER DISORDER [None]
